FAERS Safety Report 21026405 (Version 1)
Quarter: 2022Q2

REPORT INFORMATION
  Report Type: Spontaneous
  Country: US (occurrence: None)
  Receive Date: 20220629
  Receipt Date: 20220629
  Transmission Date: 20220721
  Serious: No
  Sender: FDA-Public Use
  Company Number: None

PATIENT
  Age: 23 Year
  Sex: Female

DRUGS (1)
  1. BEBTELOVIMAB [Suspect]
     Active Substance: BEBTELOVIMAB
     Indication: COVID-19
     Dates: start: 20220427, end: 20220427

REACTIONS (13)
  - Cardiac arrest [None]
  - Headache [None]
  - Nausea [None]
  - Unresponsive to stimuli [None]
  - Pupil fixed [None]
  - Pulseless electrical activity [None]
  - Torsade de pointes [None]
  - Ventricular fibrillation [None]
  - International normalised ratio increased [None]
  - Prothrombin time prolonged [None]
  - Carbon dioxide decreased [None]
  - Blood creatine increased [None]
  - Blood glucose increased [None]
